FAERS Safety Report 6679431-5 (Version None)
Quarter: 2010Q2

REPORT INFORMATION
  Report Type: 
  Country: None (occurrence: None)
  Receive Date: 20100409
  Receipt Date: 20100326
  Transmission Date: 20101027
  Serious: Yes (Death, Hospitalization, Other)
  Sender: FDA-Public Use
  Company Number: 231171J10USA

PATIENT
  Age: 55 Year
  Sex: Female

DRUGS (1)
  1. REBIF [Suspect]
     Indication: MULTIPLE SCLEROSIS
     Dosage: 44 MCG, 3 IN 1 WK, SUBCUTANEOUS
     Route: 058
     Dates: start: 20060328

REACTIONS (5)
  - EATING DISORDER [None]
  - GASTRIC CANCER [None]
  - INFECTION [None]
  - UTERINE CANCER [None]
  - VAGINAL HAEMORRHAGE [None]
